FAERS Safety Report 23023948 (Version 2)
Quarter: 2023Q4

REPORT INFORMATION
  Report Type: Report from Study
  Country: US (occurrence: US)
  Receive Date: 20231003
  Receipt Date: 20231107
  Transmission Date: 20240110
  Serious: Yes (Hospitalization)
  Sender: FDA-Public Use
  Company Number: US-ABBVIE-5430943

PATIENT
  Sex: Female

DRUGS (4)
  1. IMBRUVICA [Suspect]
     Active Substance: IBRUTINIB
     Indication: Follicular lymphoma
     Route: 048
     Dates: end: 202303
  2. IMBRUVICA [Suspect]
     Active Substance: IBRUTINIB
     Indication: Follicular lymphoma
     Route: 048
     Dates: start: 202308, end: 2023
  3. IMBRUVICA [Suspect]
     Active Substance: IBRUTINIB
     Indication: Follicular lymphoma
     Route: 048
     Dates: start: 20230805, end: 2023
  4. AMOXICILLIN [Concomitant]
     Active Substance: AMOXICILLIN
     Indication: Urinary tract infection
     Route: 065
     Dates: start: 20230928

REACTIONS (13)
  - Injury [Recovered/Resolved]
  - Lethargy [Unknown]
  - Fatigue [Unknown]
  - Anger [Unknown]
  - Fall [Unknown]
  - Disorientation [Unknown]
  - Head injury [Unknown]
  - Urinary tract infection [Unknown]
  - Diarrhoea [Unknown]
  - Mobility decreased [Unknown]
  - Dysphagia [Unknown]
  - Dehydration [Unknown]
  - Hypophagia [Unknown]

NARRATIVE: CASE EVENT DATE: 20230101
